FAERS Safety Report 5705732-0 (Version None)
Quarter: 2008Q2

REPORT INFORMATION
  Report Type: 
  Country: None (occurrence: None)
  Receive Date: 20080415
  Receipt Date: 20080404
  Transmission Date: 20081010
  Serious: Yes (Other)
  Sender: FDA-Public Use
  Company Number: B0515623A

PATIENT
  Age: 45 Year
  Sex: Female

DRUGS (3)
  1. EPIVIR [Suspect]
     Indication: HIV INFECTION
     Dosage: 150MG TWICE PER DAY
     Route: 048
  2. ZIAGEN [Concomitant]
     Indication: HIV INFECTION
     Route: 048
  3. SUSTIVA [Concomitant]
     Indication: HIV INFECTION
     Route: 048

REACTIONS (9)
  - ACCIDENTAL OVERDOSE [None]
  - ARTHRALGIA [None]
  - DEHYDRATION [None]
  - DRUG DISPENSING ERROR [None]
  - FATIGUE [None]
  - NAUSEA [None]
  - PHARMACEUTICAL PRODUCT COMPLAINT [None]
  - VOMITING [None]
  - WEIGHT DECREASED [None]
